FAERS Safety Report 15344914 (Version 5)
Quarter: 2019Q3

REPORT INFORMATION
  Report Type: Report from Study
  Country: None (occurrence: ES)
  Receive Date: 20180903
  Receipt Date: 20190924
  Transmission Date: 20191004
  Serious: Yes (Other)
  Sender: FDA-Public Use
  Company Number: ES-ABBVIE-18S-144-2470550-00

PATIENT
  Sex: Female
  Weight: 69 kg

DRUGS (2)
  1. DUODOPA [Suspect]
     Active Substance: CARBIDOPA\LEVODOPA
     Indication: PARKINSON^S DISEASE
     Dosage: MD: 14ML, CD: 3.7ML
     Route: 050
     Dates: start: 20170721
  2. DUODOPA [Suspect]
     Active Substance: CARBIDOPA\LEVODOPA
     Dosage: MD: 13.5ML, CD: 3.5ML
     Route: 050

REACTIONS (20)
  - Hypophagia [Unknown]
  - Movement disorder [Recovered/Resolved]
  - Tooth loss [Recovered/Resolved]
  - Decreased appetite [Not Recovered/Not Resolved]
  - Vaginal prolapse [Not Recovered/Not Resolved]
  - Iron deficiency anaemia [Recovered/Resolved]
  - Uterine mass [Not Recovered/Not Resolved]
  - Dyskinesia [Recovering/Resolving]
  - On and off phenomenon [Not Recovered/Not Resolved]
  - Hypokinesia [Unknown]
  - Bladder prolapse [Unknown]
  - Akinesia [Unknown]
  - Freezing phenomenon [Unknown]
  - Gingival disorder [Not Recovered/Not Resolved]
  - Abnormal loss of weight [Not Recovered/Not Resolved]
  - Balance disorder [Not Recovered/Not Resolved]
  - Fall [Not Recovered/Not Resolved]
  - Weight decreased [Recovering/Resolving]
  - Bradykinesia [Not Recovered/Not Resolved]
  - Urinary bladder haemorrhage [Not Recovered/Not Resolved]

NARRATIVE: CASE EVENT DATE: 2017
